FAERS Safety Report 4562714-2 (Version None)
Quarter: 2005Q1

REPORT INFORMATION
  Report Type: 
  Country: None (occurrence: None)
  Receive Date: 20050124
  Receipt Date: 20050114
  Transmission Date: 20050727
  Serious: Yes (Death, Hospitalization, Other)
  Sender: FDA-Public Use
  Company Number: DE-2004-034561

PATIENT
  Age: 74 Year
  Sex: Female

DRUGS (2)
  1. ULTRAVIST 300 [Suspect]
     Indication: UROGRAPHY
     Dosage: 1 DOSE INTRAVENOUS
     Route: 042
     Dates: start: 20041103, end: 20041103
  2. CARDIAC THERAPY [Concomitant]

REACTIONS (5)
  - ANAPHYLACTOID SHOCK [None]
  - CIRCULATORY COLLAPSE [None]
  - COMA [None]
  - MULTI-ORGAN FAILURE [None]
  - PROCEDURAL COMPLICATION [None]
